FAERS Safety Report 17415319 (Version 1)
Quarter: 2020Q1

REPORT INFORMATION
  Report Type: Spontaneous
  Country: US (occurrence: US)
  Receive Date: 20200213
  Receipt Date: 20200213
  Transmission Date: 20200409
  Serious: Yes (Death)
  Sender: FDA-Public Use
  Company Number: US-LEXICON PHARMACEUTICALS, INC-20-1606-00099

PATIENT
  Sex: Female

DRUGS (26)
  1. XERMELO [Suspect]
     Active Substance: TELOTRISTAT ETHYL
     Indication: CARCINOID TUMOUR PULMONARY
  2. TEMODAR [Concomitant]
     Active Substance: TEMOZOLOMIDE
  3. OMEGA 3 [Concomitant]
     Active Substance: OMEGA-3 FATTY ACIDS
  4. VITAMIN D25 [Concomitant]
  5. ZOLPIDEM [Concomitant]
     Active Substance: ZOLPIDEM TARTRATE
  6. SIMVASTATIN. [Concomitant]
     Active Substance: SIMVASTATIN
  7. VITAMIN B12 [Concomitant]
     Active Substance: CYANOCOBALAMIN
  8. CURCUMIN [Concomitant]
     Active Substance: CURCUMIN
  9. CALCITRATE PLUS D [Concomitant]
  10. CRANBERRY. [Concomitant]
     Active Substance: CRANBERRY
  11. VITAMIN C [Concomitant]
     Active Substance: ASCORBIC ACID
  12. DIPHEN/ATROP [Concomitant]
     Active Substance: ATROPINE SULFATE\DIPHENOXYLATE
  13. XERMELO [Suspect]
     Active Substance: TELOTRISTAT ETHYL
     Indication: CARCINOID TUMOUR
     Dates: start: 20180320
  14. MULTIVITAMIN [Concomitant]
     Active Substance: VITAMINS
  15. PROCHLORPERAZINE. [Concomitant]
     Active Substance: PROCHLORPERAZINE
  16. VAGIFEM [Concomitant]
     Active Substance: ESTRADIOL
  17. FLUTICASONE PROPIONATE. [Concomitant]
     Active Substance: FLUTICASONE PROPIONATE
  18. CO Q [Concomitant]
  19. ONDANSETRON [Concomitant]
     Active Substance: ONDANSETRON
  20. TYLENOL [Concomitant]
     Active Substance: ACETAMINOPHEN
  21. PREVALITE [Concomitant]
     Active Substance: CHOLESTYRAMINE
  22. LOPERAMIDE [Concomitant]
     Active Substance: LOPERAMIDE
  23. PROBIOTIC [Concomitant]
     Active Substance: PROBIOTICS NOS
  24. SANDOSTATIN [Concomitant]
     Active Substance: OCTREOTIDE ACETATE
  25. ZOLOFT [Concomitant]
     Active Substance: SERTRALINE HYDROCHLORIDE
  26. CINNAMON. [Concomitant]
     Active Substance: CINNAMON

REACTIONS (1)
  - Death [Fatal]
